FAERS Safety Report 22275687 (Version 2)
Quarter: 2023Q2

REPORT INFORMATION
  Report Type: Spontaneous
  Country: US (occurrence: US)
  Receive Date: 20230502
  Receipt Date: 20230522
  Transmission Date: 20230722
  Serious: No
  Sender: FDA-Public Use
  Company Number: US-SA-SAC20230427001631

PATIENT
  Age: 75 Year
  Sex: Female

DRUGS (1)
  1. DUPIXENT [Suspect]
     Active Substance: DUPILUMAB
     Dosage: 300MG, FREQUENCY: OTHER
     Route: 058

REACTIONS (4)
  - Lacrimation increased [Unknown]
  - Dyspnoea [Unknown]
  - Generalised oedema [Unknown]
  - Insomnia [Unknown]

NARRATIVE: CASE EVENT DATE: 20230510
